FAERS Safety Report 11171850 (Version 2)
Quarter: 2015Q3

REPORT INFORMATION
  Report Type: Spontaneous
  Country: GB (occurrence: GB)
  Receive Date: 20150608
  Receipt Date: 20150706
  Transmission Date: 20151125
  Serious: Yes (Hospitalization, Disabling, Other)
  Sender: FDA-Public Use
  Company Number: GB-PFIZER INC-2015187411

PATIENT
  Age: 49 Year
  Sex: Female
  Weight: 93 kg

DRUGS (2)
  1. SERTRALINE HCL [Suspect]
     Active Substance: SERTRALINE HYDROCHLORIDE
     Indication: SEIZURE
     Dosage: UNK ONLY TOOK 2 TABLETS
  2. RISPERIDONE. [Interacting]
     Active Substance: RISPERIDONE
     Indication: BIPOLAR DISORDER
     Dosage: 25 MG, UNK
     Route: 051
     Dates: start: 20070713, end: 20150313

REACTIONS (21)
  - Paraesthesia [Not Recovered/Not Resolved]
  - Trance [Unknown]
  - Back pain [Not Recovered/Not Resolved]
  - Anxiety [Unknown]
  - Withdrawal syndrome [Not Recovered/Not Resolved]
  - Chest discomfort [Unknown]
  - Food aversion [Unknown]
  - Hypoaesthesia [Unknown]
  - Palpitations [Not Recovered/Not Resolved]
  - Syncope [Not Recovered/Not Resolved]
  - Musculoskeletal chest pain [Not Recovered/Not Resolved]
  - Drug interaction [Unknown]
  - Tremor [Unknown]
  - Asthenia [Not Recovered/Not Resolved]
  - Neck pain [Not Recovered/Not Resolved]
  - Suicidal ideation [Unknown]
  - Erythema [Unknown]
  - Seizure [Recovered/Resolved]
  - Myalgia [Not Recovered/Not Resolved]
  - Musculoskeletal pain [Not Recovered/Not Resolved]
  - Panic reaction [Unknown]

NARRATIVE: CASE EVENT DATE: 20140101
